FAERS Safety Report 7038273-1 (Version None)
Quarter: 2010Q4

REPORT INFORMATION
  Report Type: 
  Country: None (occurrence: None)
  Receive Date: 20101011
  Receipt Date: 20091202
  Transmission Date: 20110411
  Serious: Yes (Other)
  Sender: FDA-Public Use
  Company Number: US-PFIZER INC-2009266907

PATIENT
  Sex: Male

DRUGS (6)
  1. NEURONTIN [Suspect]
     Dosage: UNK
     Route: 065
  2. NORVASC [Suspect]
     Dosage: UNK
     Route: 065
  3. ACTOS [Suspect]
     Indication: TYPE 2 DIABETES MELLITUS
     Dosage: UNK
     Route: 048
     Dates: end: 20080801
  4. ACTOS [Suspect]
     Dosage: 45 MG, 1X/DAY
     Route: 048
     Dates: start: 20080801, end: 20090801
  5. ACTOS [Suspect]
     Dosage: 15 MG, 1X/DAY
     Route: 048
     Dates: start: 20090801
  6. ZOLOFT [Concomitant]
     Dosage: UNK
     Route: 065

REACTIONS (1)
  - OEDEMA [None]
